FAERS Safety Report 17414888 (Version 2)
Quarter: 2020Q1

REPORT INFORMATION
  Report Type: Other
  Country: CA (occurrence: CA)
  Receive Date: 20200213
  Receipt Date: 20200313
  Transmission Date: 20200409
  Serious: Yes (Hospitalization, Other)
  Sender: FDA-Public Use
  Company Number: CA-ALSI-202000054

PATIENT
  Age: 17 Year
  Sex: Female

DRUGS (1)
  1. OXYGEN. [Suspect]
     Active Substance: OXYGEN
     Indication: CARBON MONOXIDE POISONING
     Route: 055

REACTIONS (7)
  - Cardiogenic shock [Recovered/Resolved]
  - Acute respiratory distress syndrome [Recovered/Resolved]
  - Coma [Recovered/Resolved]
  - Pulmonary oedema [Recovered/Resolved]
  - Acute kidney injury [Recovered/Resolved]
  - Hypotension [Recovered/Resolved]
  - Hypoxia [Recovered/Resolved]
